APPROVED DRUG PRODUCT: METOCLOPRAMIDE HYDROCHLORIDE
Active Ingredient: METOCLOPRAMIDE HYDROCHLORIDE
Strength: EQ 5MG BASE/5ML
Dosage Form/Route: SOLUTION;ORAL
Application: A071402 | Product #001 | TE Code: AA
Applicant: ANI PHARMACEUTICALS INC
Approved: Jun 25, 1993 | RLD: No | RS: No | Type: RX